FAERS Safety Report 8208813-5 (Version None)
Quarter: 2012Q1

REPORT INFORMATION
  Report Type: 
  Country: None (occurrence: None)
  Receive Date: 20120314
  Receipt Date: 20120307
  Transmission Date: 20120608
  Serious: Yes (Other)
  Sender: FDA-Public Use
  Company Number: US-PFIZER INC-2012062341

PATIENT
  Sex: Female

DRUGS (1)
  1. REVATIO [Suspect]
     Indication: LUNG DISORDER
     Dosage: 20 MG, 3X/DAY
     Dates: start: 20090316

REACTIONS (3)
  - PNEUMONIA [None]
  - LEUKAEMIA [None]
  - INFLUENZA [None]
